FAERS Safety Report 6582567-0 (Version None)
Quarter: 2010Q1

REPORT INFORMATION
  Report Type: 
  Country: None (occurrence: None)
  Receive Date: 20100203
  Receipt Date: 20100121
  Transmission Date: 20100710
  Serious: Yes (Hospitalization)
  Sender: FDA-Public Use
  Company Number: 230761J10USA

PATIENT
  Age: 51 Year
  Sex: Female
  Weight: 48 kg

DRUGS (6)
  1. REBIF [Suspect]
     Indication: MULTIPLE SCLEROSIS
     Dosage: 22 MCG, 3 IN 1 WEEKS, SUBCUTANEOUS
     Route: 058
     Dates: start: 20091223
  2. VIOKASE (PANCRELIPASE) [Concomitant]
  3. INHALER (OTHER ANTI-ASTHMATICS, INHALANTS) [Concomitant]
  4. LACTULOSE [Concomitant]
  5. HYDROCODONE (HYDROCODONE) [Concomitant]
  6. MUSCLE RELAXANT (MUSCLE RELAXANTS) [Concomitant]

REACTIONS (1)
  - PANCREATITIS [None]
